FAERS Safety Report 9068651 (Version 2)
Quarter: 2013Q1

REPORT INFORMATION
  Report Type: Spontaneous
  Country: JP (occurrence: JP)
  Receive Date: 20130128
  Receipt Date: 20130128
  Transmission Date: 20140127
  Serious: Yes (Other)
  Sender: FDA-Public Use
  Company Number: JP-PFIZER INC-2012324788

PATIENT
  Age: 68 Year
  Sex: Female

DRUGS (11)
  1. CELECOX [Suspect]
     Indication: CARPAL TUNNEL SYNDROME
     Dosage: 100 MG, 2X/DAY
     Route: 048
     Dates: start: 20121029, end: 20121116
  2. LYRICA [Suspect]
     Indication: CARPAL TUNNEL SYNDROME
     Dosage: 75 MG, 2X/DAY
     Route: 048
     Dates: start: 20121029, end: 20121112
  3. TRICOR [Suspect]
     Indication: HYPERTRIGLYCERIDAEMIA
     Dosage: 53.3 MG, 1X/DAY
     Route: 048
     Dates: start: 20121023, end: 20121116
  4. METHYCOBAL [Concomitant]
     Dosage: UNK
     Dates: start: 20120928, end: 20121116
  5. INOMARL [Concomitant]
     Indication: CARPAL TUNNEL SYNDROME
     Dosage: UNK
     Dates: start: 20121029, end: 20121116
  6. KENTON [Concomitant]
     Indication: HYPERTRIGLYCERIDAEMIA
     Dosage: UNK
     Dates: start: 20120928, end: 20121116
  7. LOXONIN [Concomitant]
     Indication: CARPAL TUNNEL SYNDROME
     Dosage: UNK
     Dates: start: 20120928, end: 20121110
  8. KENACORT-A [Concomitant]
     Dosage: UNK
     Dates: start: 20121018, end: 20121029
  9. NEUROTROPIN [Concomitant]
     Dosage: UNK
     Dates: start: 20121018, end: 20121029
  10. INFLUENZA HA VACCINE [Concomitant]
     Indication: ANTIVIRAL PROPHYLAXIS
     Dosage: UNK
     Dates: start: 20121113, end: 20121113
  11. MECOBALAMIN [Concomitant]
     Indication: CARPAL TUNNEL SYNDROME
     Dosage: UNK
     Dates: start: 20120928, end: 20121116

REACTIONS (3)
  - Aphthous stomatitis [Recovered/Resolved]
  - Toxic skin eruption [Recovered/Resolved]
  - Off label use [Unknown]
